FAERS Safety Report 4375719-1 (Version None)
Quarter: 2004Q2

REPORT INFORMATION
  Report Type: 
  Country: None (occurrence: None)
  Receive Date: 20040608
  Receipt Date: 20030209
  Transmission Date: 20050107
  Serious: Yes (Hospitalization, Other)
  Sender: FDA-Public Use
  Company Number: 200310486BCC

PATIENT
  Sex: Male

DRUGS (2)
  1. ALEVE [Suspect]
     Dosage: ORAL
     Route: 048
  2. WARFARIN SODIUM [Concomitant]

REACTIONS (1)
  - RECTAL HAEMORRHAGE [None]
